FAERS Safety Report 8820541 (Version 1)
Quarter: 2012Q4

REPORT INFORMATION
  Report Type: 
  Country: US (occurrence: US)
  Receive Date: 20121002
  Receipt Date: 20121002
  Transmission Date: 20130627
  Serious: Yes (Congenital Anomaly)
  Sender: FDA-Public Use
  Company Number: US-FRI-1000039043

PATIENT
  Age: 0 Year
  Sex: Male

DRUGS (1)
  1. CELEXA [Suspect]
     Route: 064

REACTIONS (9)
  - Anal atresia [Not Recovered/Not Resolved]
  - Kidney malformation [Not Recovered/Not Resolved]
  - Rectourethral fistula [Not Recovered/Not Resolved]
  - Congenital spinal cord anomaly [Not Recovered/Not Resolved]
  - Hemivertebra [Not Recovered/Not Resolved]
  - Congenital scoliosis [Not Recovered/Not Resolved]
  - Limb deformity [Not Recovered/Not Resolved]
  - Single functional kidney [Not Recovered/Not Resolved]
  - Congenital anomaly [Not Recovered/Not Resolved]
